FAERS Safety Report 13851177 (Version 1)
Quarter: 2017Q3

REPORT INFORMATION
  Report Type: Spontaneous
  Country: DE (occurrence: DE)
  Receive Date: 20170810
  Receipt Date: 20170810
  Transmission Date: 20171127
  Serious: Yes (Life-Threatening, Hospitalization, Other)
  Sender: FDA-Public Use
  Company Number: DE-AUROBINDO-AUR-APL-2010-00397

PATIENT
  Age: 50 Year
  Sex: Female

DRUGS (3)
  1. CARBIMAZOLE [Concomitant]
     Active Substance: CARBIMAZOLE
     Indication: PRODUCT USED FOR UNKNOWN INDICATION
     Route: 065
  2. METFORMIN AUROBINDO FILMTABLETTEN 500MG [Suspect]
     Active Substance: METFORMIN HYDROCHLORIDE
     Indication: SUICIDE ATTEMPT
     Dosage: 40 DF,UNK,
     Route: 048
  3. OLANZAPINE. [Concomitant]
     Active Substance: OLANZAPINE
     Indication: PRODUCT USED FOR UNKNOWN INDICATION
     Route: 065

REACTIONS (18)
  - Overdose [Unknown]
  - Suicide attempt [Unknown]
  - Renal failure [Unknown]
  - Agitation [Unknown]
  - Thyroid mass [Unknown]
  - Tachypnoea [Unknown]
  - Pleural effusion [Unknown]
  - Blood pressure decreased [Unknown]
  - Hypoglycaemia [Unknown]
  - Respiratory failure [Unknown]
  - Costovertebral angle tenderness [Unknown]
  - Systemic inflammatory response syndrome [Unknown]
  - Capillary leak syndrome [Unknown]
  - Cardiovascular insufficiency [Unknown]
  - Body temperature decreased [Unknown]
  - Depressed level of consciousness [Unknown]
  - Lactic acidosis [Unknown]
  - Oedema [Unknown]
